FAERS Safety Report 19730115 (Version 2)
Quarter: 2021Q3

REPORT INFORMATION
  Report Type: Other
  Country: US (occurrence: US)
  Receive Date: 20210821
  Receipt Date: 20210826
  Transmission Date: 20211014
  Serious: Yes (Other)
  Sender: FDA-Public Use
  Company Number: US-ROCHE-2894302

PATIENT
  Sex: Male

DRUGS (15)
  1. ALBUTEROL. [Concomitant]
     Active Substance: ALBUTEROL
  2. ZESTRIL [Concomitant]
     Active Substance: LISINOPRIL
  3. FISH OIL [Concomitant]
     Active Substance: FISH OIL
  4. ROZLYTREK [Suspect]
     Active Substance: ENTRECTINIB
     Indication: NEOPLASM MALIGNANT
     Dosage: TAKE 3 CAPSULE(S) BY MOUTH EVERY DAY
     Route: 048
  5. TOCOPHEROL [Concomitant]
     Active Substance: TOCOPHEROL
  6. ASCORBIC ACID. [Concomitant]
     Active Substance: ASCORBIC ACID
  7. VALIUM [Suspect]
     Active Substance: DIAZEPAM
     Indication: PRODUCT USED FOR UNKNOWN INDICATION
     Route: 048
  8. MIRALAX [Concomitant]
     Active Substance: POLYETHYLENE GLYCOL 3350
  9. HYCODAN (UNITED STATES) [Concomitant]
  10. LIPITOR [Concomitant]
     Active Substance: ATORVASTATIN CALCIUM
  11. IPRATROPIUM BROMIDE. [Concomitant]
     Active Substance: IPRATROPIUM BROMIDE
  12. TESSALON [Concomitant]
     Active Substance: BENZONATATE
  13. PRIVINIL [Concomitant]
     Active Substance: LISINOPRIL
  14. LECITHIN [Concomitant]
     Active Substance: LECITHIN
  15. CALCIUM [Concomitant]
     Active Substance: CALCIUM

REACTIONS (2)
  - Myocardial infarction [Unknown]
  - Drug hypersensitivity [Unknown]
